FAERS Safety Report 22324823 (Version 1)
Quarter: 2023Q2

REPORT INFORMATION
  Report Type: Other
  Country: PK (occurrence: None)
  Receive Date: 20230516
  Receipt Date: 20230516
  Transmission Date: 20230722
  Serious: Yes (Other)
  Sender: FDA-Public Use
  Company Number: PK-ROCHE-3350922

PATIENT
  Sex: Male

DRUGS (1)
  1. BEVACIZUMAB [Suspect]
     Active Substance: BEVACIZUMAB
     Indication: Eye disorder
     Route: 050

REACTIONS (3)
  - Endophthalmitis [Unknown]
  - Off label use [Unknown]
  - Off label use [Unknown]
